FAERS Safety Report 4864012-6 (Version None)
Quarter: 2005Q4

REPORT INFORMATION
  Report Type: 
  Country: None (occurrence: None)
  Receive Date: 20051219
  Receipt Date: 20051205
  Transmission Date: 20060501
  Serious: Yes (Death)
  Sender: FDA-Public Use
  Company Number: 2005BH003591

PATIENT
  Age: 80 Year
  Sex: Male

DRUGS (8)
  1. DEXAMETHASONE TAB [Suspect]
     Indication: MULTIPLE MYELOMA
  2. CISPLATIN [Suspect]
     Indication: MULTIPLE MYELOMA
  3. ETOPOSIDE [Suspect]
     Indication: MULTIPLE MYELOMA
  4. VELADE [Suspect]
     Indication: MULTIPLE MYELOMA
  5. THALOMID [Suspect]
     Indication: MULTIPLE MYELOMA
  6. ADRIAMYCIN PFS [Suspect]
     Indication: MULTIPLE MYELOMA
  7. CYTOXAN [Suspect]
     Indication: MULTIPLE MYELOMA
  8. MELPHALAN [Suspect]
     Indication: MULTIPLE MYELOMA
     Dosage: 200 MG/M**2

REACTIONS (1)
  - DEATH [None]
